FAERS Safety Report 4485589-9 (Version None)
Quarter: 2004Q4

REPORT INFORMATION
  Report Type: 
  Country: None (occurrence: None)
  Receive Date: 20041026
  Receipt Date: 20041018
  Transmission Date: 20050328
  Serious: Yes (Other)
  Sender: FDA-Public Use
  Company Number: ES-MERCK-0410ESP00067

PATIENT
  Age: 25 Year
  Sex: Male

DRUGS (3)
  1. MAXALT [Suspect]
     Indication: MIGRAINE WITHOUT AURA
     Route: 048
  2. ANALGESIC OR ANESTHETIC (UNSPECIFIED) [Concomitant]
     Indication: MIGRAINE WITHOUT AURA
     Route: 065
  3. IBUPROFEN [Concomitant]
     Indication: MIGRAINE WITHOUT AURA
     Route: 065

REACTIONS (1)
  - DRUG ABUSER [None]
